FAERS Safety Report 8111118-4 (Version None)
Quarter: 2012Q1

REPORT INFORMATION
  Report Type: 
  Country: None (occurrence: None)
  Receive Date: 20120203
  Receipt Date: 20110503
  Transmission Date: 20120608
  Serious: Yes (Hospitalization)
  Sender: FDA-Public Use
  Company Number: US-GLAXOSMITHKLINE-A0925578A

PATIENT
  Age: 49 Year
  Sex: Male

DRUGS (2)
  1. LAMICTAL [Suspect]
     Indication: GRAND MAL CONVULSION
     Dosage: 500MG TWICE PER DAY
     Route: 048
     Dates: start: 20070424
  2. TRAZODONE HCL [Concomitant]

REACTIONS (3)
  - CONVULSION [None]
  - PARTIAL SEIZURES [None]
  - GRAND MAL CONVULSION [None]
